FAERS Safety Report 16063319 (Version 1)
Quarter: 2019Q1

REPORT INFORMATION
  Report Type: Spontaneous
  Country: US (occurrence: US)
  Receive Date: 20190312
  Receipt Date: 20190312
  Transmission Date: 20190418
  Serious: No
  Sender: FDA-Public Use
  Company Number: US-AKRON, INC.-2063854

PATIENT
  Sex: Male

DRUGS (1)
  1. ZIOPTAN [Suspect]
     Active Substance: TAFLUPROST
     Route: 047

REACTIONS (3)
  - Erythema of eyelid [Recovered/Resolved]
  - Eye pruritus [Recovered/Resolved]
  - Eyelid ptosis [Recovered/Resolved]
